FAERS Safety Report 20988889 (Version 1)
Quarter: 2022Q2

REPORT INFORMATION
  Report Type: Spontaneous
  Country: CN (occurrence: CN)
  Receive Date: 20220621
  Receipt Date: 20220621
  Transmission Date: 20220721
  Serious: Yes (Hospitalization)
  Sender: FDA-Public Use
  Company Number: CN-SCALL-2022-CN-000182

PATIENT
  Age: 57 Year
  Sex: Female

DRUGS (4)
  1. RABEPRAZOLE SODIUM [Suspect]
     Active Substance: RABEPRAZOLE SODIUM
     Indication: Helicobacter infection
     Dosage: FREQUENCY UNKNOWN, 20MG
     Route: 048
     Dates: start: 20220508, end: 20220520
  2. FURAZOLIDONE [Suspect]
     Active Substance: FURAZOLIDONE
     Dosage: FREQUENCY UNKNOWN, 0.2 GM
     Route: 048
     Dates: start: 20220508, end: 20220520
  3. BISMUTH ALUMINATE [Suspect]
     Active Substance: BISMUTH ALUMINATE
     Dosage: FREQUENCY UNKNOWN, 6 BAGS
     Route: 048
     Dates: start: 20220508, end: 20220520
  4. AMOXICILLIN [Suspect]
     Active Substance: AMOXICILLIN
     Dosage: FREQUENCY UNKNOWN, 2GM
     Route: 048
     Dates: start: 20220508, end: 20220520

REACTIONS (1)
  - Drug eruption [Recovered/Resolved]

NARRATIVE: CASE EVENT DATE: 20220520
